FAERS Safety Report 21636230 (Version 1)
Quarter: 2022Q4

REPORT INFORMATION
  Report Type: Spontaneous
  Country: JP (occurrence: JP)
  Receive Date: 20221124
  Receipt Date: 20221124
  Transmission Date: 20230113
  Serious: Yes (Other)
  Sender: FDA-Public Use
  Company Number: JP-BRISTOL-MYERS SQUIBB COMPANY-BMS-2021-115351

PATIENT
  Age: 86 Year
  Sex: Male

DRUGS (2)
  1. YERVOY [Suspect]
     Active Substance: IPILIMUMAB
     Indication: Malignant melanoma
     Dosage: UNK
     Route: 041
  2. OPDIVO [Suspect]
     Active Substance: NIVOLUMAB
     Indication: Malignant melanoma
     Dosage: UNK
     Route: 041

REACTIONS (10)
  - Secondary adrenocortical insufficiency [Unknown]
  - Immune-mediated hypophysitis [Unknown]
  - Pituitary enlargement [Unknown]
  - Adrenocorticotropic hormone deficiency [Unknown]
  - Gonadotrophin deficiency [Unknown]
  - Fatigue [Unknown]
  - Decreased appetite [Unknown]
  - Hypoglycaemia [Unknown]
  - Eosinophilia [Unknown]
  - Diarrhoea [Unknown]
